FAERS Safety Report 14120160 (Version 1)
Quarter: 2017Q4

REPORT INFORMATION
  Report Type: Spontaneous
  Country: US (occurrence: US)
  Receive Date: 20171024
  Receipt Date: 20171024
  Transmission Date: 20180321
  Serious: Yes (Other)
  Sender: FDA-Public Use
  Company Number: None

PATIENT
  Sex: Female
  Weight: 74.25 kg

DRUGS (4)
  1. DILTIAZEM ER [Concomitant]
     Active Substance: DILTIAZEM
  2. CAPECITABINE. [Suspect]
     Active Substance: CAPECITABINE
     Indication: GASTROINTESTINAL CARCINOMA
     Dosage: ?          OTHER FREQUENCY:14 DAYS ON/7 OFF;?
     Route: 048
     Dates: start: 20171009, end: 20171024
  3. LISINOPRIL. [Concomitant]
     Active Substance: LISINOPRIL
  4. XARELTO [Concomitant]
     Active Substance: RIVAROXABAN

REACTIONS (2)
  - Disease progression [None]
  - Therapy cessation [None]
